FAERS Safety Report 15258453 (Version 1)
Quarter: 2018Q4

REPORT INFORMATION
  Report Type: Spontaneous
  Country: DE (occurrence: DE)
  Receive Date: 20180809
  Receipt Date: 20180809
  Transmission Date: 20190204
  Serious: No
  Sender: FDA-Public Use
  Company Number: DE-LUPIN PHARMACEUTICALS INC.-2018-04472

PATIENT
  Sex: Male

DRUGS (1)
  1. NITOMAN [Suspect]
     Active Substance: TETRABENAZINE
     Indication: PRODUCT USED FOR UNKNOWN INDICATION
     Dosage: UNK
     Route: 048

REACTIONS (3)
  - Wrong technique in product usage process [Unknown]
  - Product prescribing error [Unknown]
  - Treatment noncompliance [Not Recovered/Not Resolved]
